FAERS Safety Report 6119530-X (Version None)
Quarter: 2009Q1

REPORT INFORMATION
  Report Type: 
  Country: None (occurrence: None)
  Receive Date: 20090316
  Receipt Date: 20090306
  Transmission Date: 20090719
  Serious: Yes (Hospitalization)
  Sender: FDA-Public Use
  Company Number: A0773258A

PATIENT
  Age: 50 Year
  Sex: Female
  Weight: 70.5 kg

DRUGS (2)
  1. AVANDIA [Suspect]
     Dosage: 4MG TWICE PER DAY
     Route: 048
     Dates: start: 20051229, end: 20060618
  2. AVANDAMET [Suspect]
     Route: 048
     Dates: start: 20051102, end: 20070729

REACTIONS (6)
  - ABASIA [None]
  - CEREBROVASCULAR ACCIDENT [None]
  - DIZZINESS [None]
  - MOVEMENT DISORDER [None]
  - NERVOUS SYSTEM DISORDER [None]
  - VERTIGO [None]
